FAERS Safety Report 24795194 (Version 2)
Quarter: 2025Q3

REPORT INFORMATION
  Report Type: Spontaneous
  Country: JP (occurrence: JP)
  Receive Date: 20241231
  Receipt Date: 20250809
  Transmission Date: 20251021
  Serious: Yes (Other)
  Sender: ALEXION PHARMACEUTICALS
  Company Number: JP-ASTRAZENECA-240146280_063010_P_1

PATIENT
  Sex: Female

DRUGS (5)
  1. DAPAGLIFLOZIN [Suspect]
     Active Substance: DAPAGLIFLOZIN
  2. DAPAGLIFLOZIN [Suspect]
     Active Substance: DAPAGLIFLOZIN
  3. DAPAGLIFLOZIN [Suspect]
     Active Substance: DAPAGLIFLOZIN
  4. DAPAGLIFLOZIN [Suspect]
     Active Substance: DAPAGLIFLOZIN
  5. GLYCERIN\THYMOL [Concomitant]
     Active Substance: GLYCERIN\THYMOL
     Indication: Constipation
     Route: 065

REACTIONS (7)
  - Renal impairment [Unknown]
  - Arteriosclerosis [Unknown]
  - Blood pressure decreased [Unknown]
  - Dizziness [Unknown]
  - Herpes zoster [Recovering/Resolving]
  - Sleep disorder due to general medical condition, insomnia type [Unknown]
  - Cystitis [Unknown]

NARRATIVE: CASE EVENT DATE: 20240101
